FAERS Safety Report 9261117 (Version 1)
Quarter: 2013Q2

REPORT INFORMATION
  Report Type: Spontaneous
  Country: IE (occurrence: IE)
  Receive Date: 20130429
  Receipt Date: 20130429
  Transmission Date: 20140414
  Serious: Yes (Hospitalization)
  Sender: FDA-Public Use
  Company Number: IE-AMGEN-IRLSP2013028727

PATIENT
  Age: 84 Year
  Sex: Male

DRUGS (1)
  1. ARANESP [Suspect]
     Indication: RENAL IMPAIRMENT
     Dosage: 40 MUG, Q2WK
     Route: 058
     Dates: start: 20120629

REACTIONS (2)
  - Haemoglobin decreased [Unknown]
  - Skin ulcer [Unknown]
